FAERS Safety Report 9858782 (Version 1)
Quarter: 2014Q1

REPORT INFORMATION
  Report Type: Spontaneous
  Country: US (occurrence: US)
  Receive Date: 20140131
  Receipt Date: 20140131
  Transmission Date: 20141002
  Serious: No
  Sender: FDA-Public Use
  Company Number: US-009507513-1401USA004909

PATIENT
  Sex: Male

DRUGS (1)
  1. CORICIDIN HBP CHEST CONGESTION AND COUGH [Suspect]
     Indication: PRODUCT USED FOR UNKNOWN INDICATION
     Dosage: 2 DF, BID
     Route: 048

REACTIONS (4)
  - Somnolence [Recovering/Resolving]
  - Hallucination [Recovering/Resolving]
  - Feeling abnormal [Recovering/Resolving]
  - Feeling of relaxation [Recovering/Resolving]
